FAERS Safety Report 5545498-0 (Version None)
Quarter: 2007Q4

REPORT INFORMATION
  Report Type: 
  Country: None (occurrence: None)
  Receive Date: 20071211
  Receipt Date: 20070125
  Transmission Date: 20080405
  Serious: No
  Sender: FDA-Public Use
  Company Number: US-AMGEN-KDL208630

PATIENT
  Sex: Female

DRUGS (2)
  1. ENBREL [Suspect]
     Indication: PSORIASIS
     Route: 058
     Dates: start: 20061120, end: 20061201
  2. CLOBETASOL PROPIONATE [Concomitant]
     Route: 061

REACTIONS (2)
  - HEADACHE [None]
  - INJECTION SITE PAIN [None]
